FAERS Safety Report 7581623-8 (Version None)
Quarter: 2011Q2

REPORT INFORMATION
  Report Type: 
  Country: None (occurrence: None)
  Receive Date: 20110629
  Receipt Date: 20110415
  Transmission Date: 20111010
  Serious: Yes (Other)
  Sender: FDA-Public Use
  Company Number: US-BAYER-2011-016519

PATIENT
  Sex: Female
  Weight: 95 kg

DRUGS (64)
  1. ETHYL CHLORIDE [Concomitant]
  2. ADVAIR DISKUS 100/50 [Concomitant]
  3. AMOXICILLIN [Concomitant]
  4. FLAGYL [Concomitant]
  5. NITROFURANTOIN [Concomitant]
  6. LEVAQUIN [Concomitant]
  7. TRAMADOL HCL [Concomitant]
  8. SUCRALFATE [Concomitant]
  9. ALBUTEROL SULFATE AUTOHALER [Concomitant]
  10. ACTOS [Concomitant]
  11. METFORMIN HCL [Concomitant]
  12. DIGOXIN [Concomitant]
  13. TIZANIDINE HCL [Concomitant]
  14. OMNISCAN [Suspect]
     Dosage: UNK, ONCE
     Dates: start: 20051220, end: 20051220
  15. GADOLINIUM IN UNSPECIFIED DRUG [Concomitant]
     Dosage: UNK
     Dates: start: 20060419, end: 20060419
  16. GLYBURIDE [Concomitant]
  17. EFFEXOR XR [Concomitant]
  18. SERTRALINE [Concomitant]
  19. LASIX [Concomitant]
  20. CEFADROXIL [Concomitant]
  21. CARDIZEM LA [Concomitant]
  22. OPTIMARK [Suspect]
     Indication: IMAGING PROCEDURE
  23. GADOLINIUM IN UNSPECIFIED DRUG [Concomitant]
     Indication: NUCLEAR MAGNETIC RESONANCE IMAGING BRAIN
     Dosage: UNK, ONCE
     Dates: start: 20060202, end: 20060202
  24. CEFAZOLIN [Concomitant]
  25. CEPHALEXIN [Concomitant]
  26. AMBIEN [Concomitant]
  27. INSULIN [Concomitant]
  28. OMNISCAN [Suspect]
     Dosage: UNK, ONCE
     Dates: start: 20050818, end: 20050818
  29. PRANDIN [Concomitant]
  30. HYDROCODONE [Concomitant]
  31. HYDROCODONE/GUAIFENESIN [Concomitant]
  32. NPH INSULIN [Concomitant]
  33. OMNISCAN [Suspect]
     Indication: IMAGING PROCEDURE
     Dosage: UNK UNK, ONCE
     Dates: start: 20050420, end: 20050420
  34. GADOLINIUM IN UNSPECIFIED DRUG [Concomitant]
     Dosage: UNK
     Dates: start: 20060505, end: 20060505
  35. GABAPENTIN [Concomitant]
  36. LANTUS [Concomitant]
  37. OXYCODONE HCL [Concomitant]
  38. ENOXAPARIN [Concomitant]
  39. NIFEDIPINE [Concomitant]
  40. CEFUROXIME [Concomitant]
  41. LUNESTA [Concomitant]
  42. POTASSIUM CHLORIDE [Concomitant]
  43. PIOGLITAZONE [Concomitant]
  44. GADOLINIUM IN UNSPECIFIED DRUG [Concomitant]
     Indication: NUCLEAR MAGNETIC RESONANCE IMAGING
     Dosage: UNK UNK, ONCE
     Dates: start: 20050817, end: 20050817
  45. TORSEMIDE [Concomitant]
  46. CLONAZEPAM [Concomitant]
  47. FENTANYL [Concomitant]
  48. VICODIN [Concomitant]
  49. AMIODARONE HCL [Concomitant]
  50. MORPHINE SULFATE [Concomitant]
  51. TAMOXIFEN CITRATE [Concomitant]
  52. PROMETHAZINE [Concomitant]
  53. XOPENEX [Concomitant]
  54. MAGNEVIST [Suspect]
     Indication: IMAGING PROCEDURE
  55. OMNISCAN [Suspect]
     Dosage: UNK, ONCE
     Dates: start: 20051101, end: 20051101
  56. OMNISCAN [Suspect]
     Dosage: UNK
     Dates: start: 20060203, end: 20060203
  57. GLUCOPHAGE [Concomitant]
  58. CARVEDILOL [Concomitant]
  59. VALSARTAN [Concomitant]
  60. CEFZIL [Concomitant]
  61. MEPROZINE [Concomitant]
  62. FLUCONAZOLE [Concomitant]
  63. BENZONATATE [Concomitant]
  64. MICROLET [Concomitant]

REACTIONS (10)
  - GENERAL PHYSICAL HEALTH DETERIORATION [None]
  - NEPHROGENIC SYSTEMIC FIBROSIS [None]
  - SKIN LESION [None]
  - PAIN [None]
  - ERYTHEMA [None]
  - PAIN IN EXTREMITY [None]
  - OEDEMA PERIPHERAL [None]
  - HYPOAESTHESIA [None]
  - DEFORMITY [None]
  - SCAR [None]
